FAERS Safety Report 21165001 (Version 1)
Quarter: 2022Q3

REPORT INFORMATION
  Report Type: Spontaneous
  Country: US (occurrence: US)
  Receive Date: 20220803
  Receipt Date: 20220803
  Transmission Date: 20221026
  Serious: Yes (Other)
  Sender: FDA-Public Use
  Company Number: US-OCTA-LIT02622US

PATIENT
  Age: 14 Year
  Sex: Female

DRUGS (6)
  1. HUMAN RED BLOOD CELL [Concomitant]
     Active Substance: HUMAN RED BLOOD CELL
     Indication: Product used for unknown indication
  2. PLATELETS [Concomitant]
     Active Substance: HUMAN PLATELET, ALLOGENIC
     Indication: Product used for unknown indication
  3. CEFEPIME [Concomitant]
     Active Substance: CEFEPIME HYDROCHLORIDE
     Indication: Pneumonia
     Dosage: 7-DAY COURSE
     Route: 042
  4. FLUCONAZOLE [Concomitant]
     Active Substance: FLUCONAZOLE
     Indication: Pneumonia
     Route: 048
  5. NITAZOXANIDE [Concomitant]
     Active Substance: NITAZOXANIDE
     Indication: Cryptosporidiosis infection
  6. HUMAN IMMUNOGLOBULIN G [Suspect]
     Active Substance: HUMAN IMMUNOGLOBULIN G
     Indication: Parvovirus B19 infection
     Dosage: SECOND DOSE
     Route: 042

REACTIONS (3)
  - Vision blurred [Recovered/Resolved]
  - Monoplegia [Recovered/Resolved]
  - Wheezing [Recovered/Resolved]
